FAERS Safety Report 6013040-6 (Version None)
Quarter: 2008Q4

REPORT INFORMATION
  Report Type: 
  Country: None (occurrence: None)
  Receive Date: 20081219
  Receipt Date: 20081212
  Transmission Date: 20090506
  Serious: Yes (Death, Other)
  Sender: FDA-Public Use
  Company Number: US-AVENTIS-200818456US

PATIENT
  Age: 79 Year
  Sex: Female
  Weight: 64.55 kg

DRUGS (3)
  1. LOVENOX [Suspect]
     Dosage: DOSE: UNK
     Dates: start: 20081128
  2. PLAVIX [Suspect]
     Dosage: DOSE: UNK
     Route: 048
  3. INTEGRILIN [Concomitant]
     Dosage: DOSE: UNK

REACTIONS (3)
  - DEATH [None]
  - RETROPERITONEAL HAEMORRHAGE [None]
  - THROMBOSIS [None]
